FAERS Safety Report 24417990 (Version 1)
Quarter: 2024Q4

REPORT INFORMATION
  Report Type: Spontaneous
  Country: CA (occurrence: CA)
  Receive Date: 20241009
  Receipt Date: 20241009
  Transmission Date: 20250115
  Serious: Yes (Other)
  Sender: PFIZER
  Company Number: CA-PFIZER INC-202400271687

PATIENT
  Age: 68 Year
  Sex: Female
  Weight: 61 kg

DRUGS (5)
  1. METHYLPREDNISOLONE [Interacting]
     Active Substance: METHYLPREDNISOLONE
  2. RITONAVIR [Interacting]
     Active Substance: RITONAVIR
     Indication: Antiretroviral therapy
     Dosage: UNK, 1X/DAY
  3. ABACAVIR [Concomitant]
     Active Substance: ABACAVIR
  4. DARUNAVIR [Concomitant]
     Active Substance: DARUNAVIR
     Route: 048
  5. LAMIVUDINE [Concomitant]
     Active Substance: LAMIVUDINE

REACTIONS (3)
  - Addison^s disease [Unknown]
  - Drug interaction [Unknown]
  - Orthostatic hypotension [Unknown]
